FAERS Safety Report 13014535 (Version 3)
Quarter: 2017Q1

REPORT INFORMATION
  Report Type: Spontaneous
  Country: US (occurrence: BR)
  Receive Date: 20161209
  Receipt Date: 20170320
  Transmission Date: 20170428
  Serious: Yes (Other)
  Sender: FDA-Public Use
  Company Number: US-MYLANLABS-2016M1054482

PATIENT

DRUGS (2)
  1. BELIMUMAB [Suspect]
     Active Substance: BELIMUMAB
     Indication: SYSTEMIC LUPUS ERYTHEMATOSUS
     Dosage: UNK
     Dates: start: 20140117
  2. ACICLOVIR [Suspect]
     Active Substance: ACYCLOVIR
     Indication: PRODUCT USED FOR UNKNOWN INDICATION
     Dosage: 200 MG (DOSAGE, 20 TABLETS FOR 10 DAYS)

REACTIONS (27)
  - Bursitis [Unknown]
  - Nausea [Unknown]
  - Cold sweat [Unknown]
  - Onychomadesis [Unknown]
  - Liver disorder [Unknown]
  - Blood pressure increased [Unknown]
  - Circumstance or information capable of leading to medication error [Unknown]
  - Tooth disorder [Unknown]
  - Vomiting [Recovering/Resolving]
  - Hemiplegia [Unknown]
  - Dyspnoea [Unknown]
  - Infection [Unknown]
  - Tremor [Unknown]
  - Malaise [Recovering/Resolving]
  - Viral infection [Recovering/Resolving]
  - Pallor [Unknown]
  - Inappropriate schedule of drug administration [Unknown]
  - Diarrhoea [Recovering/Resolving]
  - Yellow skin [Recovering/Resolving]
  - Weight decreased [Unknown]
  - Systemic lupus erythematosus disease activity index abnormal [Unknown]
  - Back pain [Unknown]
  - Arthralgia [Unknown]
  - Otorrhoea [Unknown]
  - Abdominal pain upper [Recovering/Resolving]
  - Hypersensitivity [Unknown]
  - Nasopharyngitis [Unknown]
